FAERS Safety Report 5817994-X (Version None)
Quarter: 2008Q3

REPORT INFORMATION
  Report Type: 
  Country: None (occurrence: None)
  Receive Date: 20080722
  Receipt Date: 20070731
  Transmission Date: 20090109
  Serious: No
  Sender: FDA-Public Use
  Company Number: US-BAYER-US-2007-028476

PATIENT
  Sex: Female

DRUGS (1)
  1. MAGNEVIST [Suspect]
     Indication: NUCLEAR MAGNETIC RESONANCE IMAGING

REACTIONS (5)
  - CHEST DISCOMFORT [None]
  - FEELING HOT [None]
  - FEELING JITTERY [None]
  - HEART RATE INCREASED [None]
  - THROAT TIGHTNESS [None]
